FAERS Safety Report 5692933-3 (Version None)
Quarter: 2008Q2

REPORT INFORMATION
  Report Type: 
  Country: None (occurrence: None)
  Receive Date: 20080328
  Receipt Date: 20070329
  Transmission Date: 20081010
  Serious: Yes (Other)
  Sender: FDA-Public Use
  Company Number: HQWYE220130MAR07

PATIENT
  Age: 46 Year
  Sex: Female
  Weight: 110.32 kg

DRUGS (6)
  1. PROTONIX [Suspect]
     Indication: GASTROOESOPHAGEAL REFLUX DISEASE
     Dosage: 40 MG 2X PER 1 DAY, ORAL
     Route: 048
     Dates: start: 20070301
  2. TOPAMAX [Concomitant]
  3. ASPIRIN (ACETYSALICYLC ACID) [Concomitant]
  4. LASIX [Concomitant]
  5. ABILIFY [Concomitant]
  6. LEXAPRO [Concomitant]

REACTIONS (1)
  - THERAPEUTIC RESPONSE UNEXPECTED [None]
